FAERS Safety Report 19080782 (Version 2)
Quarter: 2021Q2

REPORT INFORMATION
  Report Type: Report from Study
  Country: SG (occurrence: SG)
  Receive Date: 20210331
  Receipt Date: 20210414
  Transmission Date: 20210717
  Serious: Yes (Hospitalization)
  Sender: FDA-Public Use
  Company Number: SG-EXELIXIS-XL18421038946

PATIENT
  Age: 65 Year
  Sex: Female
  Weight: 64 kg

DRUGS (26)
  1. METFORMIN HCL [Concomitant]
     Active Substance: METFORMIN HYDROCHLORIDE
  2. NAPROXEN SODIUM. [Concomitant]
     Active Substance: NAPROXEN SODIUM
  3. KETOTIFEN [Concomitant]
     Active Substance: KETOTIFEN
  4. GLUCOSAMINE SULPHATE [Concomitant]
     Active Substance: GLUCOSAMINE
  5. PLACEBO [Suspect]
     Active Substance: UNSPECIFIED INGREDIENT
     Dosage: 20 MG, QD
     Route: 048
     Dates: start: 20210408
  6. IPILIMUMAB [Suspect]
     Active Substance: IPILIMUMAB
     Indication: RENAL CELL CARCINOMA
     Dosage: 1 MG/KG, Q3WEEKS, 4 DOSES
     Route: 042
     Dates: start: 20200821
  7. LINAGLIPTINA [Concomitant]
     Active Substance: LINAGLIPTIN
  8. MOMETASONE FUROATE. [Concomitant]
     Active Substance: MOMETASONE FUROATE
  9. PREDNISOLONE. [Concomitant]
     Active Substance: PREDNISOLONE
  10. NIVOLUMAB [Suspect]
     Active Substance: NIVOLUMAB
     Indication: RENAL CELL CARCINOMA
     Dosage: 3 MG/KG, Q3WEEKS, 4 DOSES
     Route: 042
     Dates: start: 20200821
  11. BETAMETHASONE. [Concomitant]
     Active Substance: BETAMETHASONE
  12. ENALAPRIL MALEATE. [Concomitant]
     Active Substance: ENALAPRIL MALEATE
  13. NIFEDIPINE. [Concomitant]
     Active Substance: NIFEDIPINE
  14. SIMVASTATIN. [Concomitant]
     Active Substance: SIMVASTATIN
  15. METOCLOPRAMIDE. [Concomitant]
     Active Substance: METOCLOPRAMIDE
  16. TRAMADOL HCL [Concomitant]
     Active Substance: TRAMADOL HYDROCHLORIDE
  17. MAGNESIUM [Concomitant]
     Active Substance: MAGNESIUM
  18. NEUROBION [Concomitant]
     Active Substance: CYANOCOBALAMIN\PYRIDOXINE\THIAMINE
  19. ETORICOXIB. [Concomitant]
     Active Substance: ETORICOXIB
  20. CLOBETASOL PROPIONATE. [Concomitant]
     Active Substance: CLOBETASOL PROPIONATE
  21. PARACETAMOL [Concomitant]
     Active Substance: ACETAMINOPHEN
  22. GLIPIZIDE. [Concomitant]
     Active Substance: GLIPIZIDE
  23. FAMOTIDINE. [Concomitant]
     Active Substance: FAMOTIDINE
  24. PLACEBO [Suspect]
     Active Substance: UNSPECIFIED INGREDIENT
     Indication: RENAL CELL CARCINOMA
     Dosage: 40 MG, QD
     Route: 048
     Dates: start: 20200821
  25. PLACEBO [Suspect]
     Active Substance: UNSPECIFIED INGREDIENT
     Dosage: 20 MG, QD
     Route: 048
     Dates: start: 20200821, end: 20210319
  26. NIVOLUMAB [Suspect]
     Active Substance: NIVOLUMAB
     Dosage: 480 MG, Q4WEEKS, FLAT DOSE
     Route: 042

REACTIONS (1)
  - Lichenoid keratosis [Recovering/Resolving]

NARRATIVE: CASE EVENT DATE: 20210304
